FAERS Safety Report 5764042-6 (Version None)
Quarter: 2008Q2

REPORT INFORMATION
  Report Type: 
  Country: None (occurrence: None)
  Receive Date: 20080605
  Receipt Date: 20080523
  Transmission Date: 20081010
  Serious: Yes (Hospitalization)
  Sender: FDA-Public Use
  Company Number: 234897J08USA

PATIENT
  Age: 58 Year
  Sex: Female
  Weight: 64.4108 kg

DRUGS (5)
  1. REBIF [Suspect]
     Indication: MULTIPLE SCLEROSIS
     Dosage: 44 MCG, 3 IN 1 WEEKS, SUBCUTANEOUS
     Route: 058
     Dates: start: 20071120
  2. POTASSIUM (POTASSIUM/00021401/) [Concomitant]
  3. ASPIRIN [Concomitant]
  4. MAGNESIUM (MAGNESIUM HYDROXIDE) [Concomitant]
  5. TOPROL-XL [Concomitant]

REACTIONS (2)
  - CROHN'S DISEASE [None]
  - HEART RATE INCREASED [None]
